FAERS Safety Report 20206904 (Version 1)
Quarter: 2021Q4

REPORT INFORMATION
  Report Type: Spontaneous
  Country: US (occurrence: US)
  Receive Date: 20211220
  Receipt Date: 20211220
  Transmission Date: 20220303
  Serious: No
  Sender: FDA-Public Use
  Company Number: US-CELGENE-USA-20211204549

PATIENT
  Sex: Female
  Weight: 80.29 kg

DRUGS (9)
  1. REVLIMID [Suspect]
     Active Substance: LENALIDOMIDE
     Indication: Diffuse large B-cell lymphoma
     Dosage: 25 MILLIGRAM
     Route: 048
     Dates: start: 20211103, end: 20211114
  2. B12 Fast Dissolve [Concomitant]
     Indication: Product used for unknown indication
     Dosage: 5000 MICROGRAM
     Route: 048
     Dates: start: 20211101
  3. BUMETANIDE [Concomitant]
     Active Substance: BUMETANIDE
     Indication: Product used for unknown indication
     Route: 048
     Dates: start: 20211029
  4. Calcium 600+ D High Potency [Concomitant]
     Indication: Product used for unknown indication
     Dosage: 600-400
     Route: 048
     Dates: start: 20211101
  5. GABAPENTIN [Concomitant]
     Active Substance: GABAPENTIN
     Indication: Product used for unknown indication
     Dosage: 100 MILLIGRAM
     Route: 048
     Dates: start: 20211029
  6. LANTUS SOLOSTAR [Concomitant]
     Active Substance: INSULIN GLARGINE
     Indication: Product used for unknown indication
     Dosage: 100 UNIT/ML 5 UNITS
     Route: 058
     Dates: start: 20211101
  7. LUTEIN [Concomitant]
     Active Substance: LUTEIN
     Indication: Product used for unknown indication
     Dosage: 20 MILLIGRAM
     Route: 048
     Dates: start: 20211101
  8. MECLIZINE HYDROCHLORIDE [Concomitant]
     Active Substance: MECLIZINE HYDROCHLORIDE
     Indication: Product used for unknown indication
     Route: 048
     Dates: start: 20211029
  9. METOPROLOL SUCCINATE [Concomitant]
     Active Substance: METOPROLOL SUCCINATE
     Indication: Product used for unknown indication
     Dosage: 25 MILLIGRAM
     Route: 048
     Dates: start: 20211029

REACTIONS (1)
  - Thrombocytopenia [Unknown]
